FAERS Safety Report 22309723 (Version 1)
Quarter: 2023Q2

REPORT INFORMATION
  Report Type: Spontaneous
  Country: FR (occurrence: FR)
  Receive Date: 20230511
  Receipt Date: 20230511
  Transmission Date: 20230721
  Serious: Yes (Hospitalization)
  Sender: FDA-Public Use
  Company Number: None

PATIENT
  Age: 45 Year
  Sex: Male
  Weight: 70 kg

DRUGS (8)
  1. PAXLOVID [Interacting]
     Active Substance: NIRMATRELVIR\RITONAVIR
     Indication: COVID-19 treatment
     Dosage: 3 DF, ALTERNATE DAY
     Route: 048
     Dates: start: 20230418, end: 20230421
  2. PROGRAF [Interacting]
     Active Substance: TACROLIMUS
     Indication: Heart transplant
     Dosage: FREQ: 12 HRS; 2.5 MG, MORNING AND EVENING
     Route: 048
     Dates: start: 2020
  3. VALACYCLOVIR HYDROCHLORIDE [Concomitant]
     Active Substance: VALACYCLOVIR HYDROCHLORIDE
  4. PRAVASTATIN SODIUM [Concomitant]
     Active Substance: PRAVASTATIN SODIUM
     Dosage: 20 MG, 1X/DAY
     Route: 048
  5. POTASSIUM CHLORIDE [Concomitant]
     Active Substance: POTASSIUM CHLORIDE
  6. SOTALOL [Concomitant]
     Active Substance: SOTALOL
  7. MYCOPHENOLATE MOFETIL [Concomitant]
     Active Substance: MYCOPHENOLATE MOFETIL
     Dosage: 500 MG, TWO TABLETS AT NOON AND MIDNIGHT
     Route: 048
  8. PREDNISONE [Concomitant]
     Active Substance: PREDNISONE
     Dosage: 5 MG AT NOON
     Route: 048

REACTIONS (7)
  - Accidental overdose [Recovered/Resolved]
  - Product prescribing error [Recovered/Resolved]
  - Labelled drug-drug interaction medication error [Recovered/Resolved]
  - Acute kidney injury [Recovering/Resolving]
  - Hyperkalaemia [Recovered/Resolved]
  - Headache [Recovered/Resolved]
  - Off label use [Unknown]

NARRATIVE: CASE EVENT DATE: 20230418
